FAERS Safety Report 6470449-4 (Version None)
Quarter: 2009Q4

REPORT INFORMATION
  Report Type: 
  Country: None (occurrence: None)
  Receive Date: 20091203
  Receipt Date: 20091123
  Transmission Date: 20100525
  Serious: Yes (Other)
  Sender: FDA-Public Use
  Company Number: US-JNJCH-2009030929

PATIENT
  Age: 57 Year
  Sex: Male
  Weight: 90.7 kg

DRUGS (4)
  1. ADVANCED LISTERINE WITH TARTAR PROTECTION [Suspect]
     Indication: STOMATITIS
     Dosage: TEXT:A MOUTHFUL ONCE
     Route: 048
     Dates: start: 20091122, end: 20091122
  2. CARBAMAZEPINE [Concomitant]
     Indication: EPILEPSY
     Dosage: TEXT:UNSPECIFIED - 3 DAILY
     Route: 065
  3. CLONAZEPAM [Concomitant]
     Indication: EPILEPSY
     Dosage: TEXT:UNSPECIFIED - 3 DAILY
     Route: 065
  4. AFRIN [Concomitant]
     Indication: NASAL CONGESTION
     Dosage: TEXT:UNSPECIFIED - 2 TIMES DAILY
     Route: 065

REACTIONS (5)
  - CHEST DISCOMFORT [None]
  - DYSGEUSIA [None]
  - OFF LABEL USE [None]
  - PALPITATIONS [None]
  - PARAESTHESIA [None]
